FAERS Safety Report 6808932-1 (Version None)
Quarter: 2010Q2

REPORT INFORMATION
  Report Type: 
  Country: None (occurrence: None)
  Receive Date: 20100630
  Receipt Date: 20091104
  Transmission Date: 20101027
  Serious: No
  Sender: FDA-Public Use
  Company Number: US-PFIZER INC-2009263213

PATIENT
  Age: 42 Year
  Sex: Female
  Weight: 51.709 kg

DRUGS (2)
  1. ALPRAZOLAM [Suspect]
     Indication: ANXIETY
     Dosage: 0.25 MG, AS NEEDED
     Route: 048
  2. ALPRAZOLAM [Suspect]
     Indication: PANIC ATTACK

REACTIONS (3)
  - ABDOMINAL PAIN UPPER [None]
  - DISCOMFORT [None]
  - HYPERSENSITIVITY [None]
